FAERS Safety Report 10404919 (Version 1)
Quarter: 2014Q3

REPORT INFORMATION
  Report Type: Spontaneous
  Country: US (occurrence: None)
  Receive Date: 20140819
  Receipt Date: 20140819
  Transmission Date: 20150326
  Serious: No
  Sender: FDA-Public Use
  Company Number: None

PATIENT
  Age: 70 Year
  Sex: Female
  Weight: 72.58 kg

DRUGS (1)
  1. TIMOLOL MALEATE. [Suspect]
     Active Substance: TIMOLOL MALEATE
     Indication: GLAUCOMA
     Dosage: 6.8 MG/ML - .5% 5 ML   1 DROP  BID  INTO EYE
     Route: 047
     Dates: start: 20140523, end: 20140730

REACTIONS (6)
  - Lip swelling [None]
  - Toothache [None]
  - Stomatitis [None]
  - Dyspnoea [None]
  - Nasal ulcer [None]
  - Gingival pain [None]

NARRATIVE: CASE EVENT DATE: 20140707
